FAERS Safety Report 7330122-7 (Version None)
Quarter: 2011Q1

REPORT INFORMATION
  Report Type: 
  Country: None (occurrence: None)
  Receive Date: 20110303
  Receipt Date: 20110210
  Transmission Date: 20110831
  Serious: Yes (Other)
  Sender: FDA-Public Use
  Company Number: US-BAYER-2011-019344

PATIENT
  Sex: Female

DRUGS (3)
  1. YASMIN [Suspect]
     Dosage: UNK
     Dates: start: 20090501
  2. OCELLA [Suspect]
     Dosage: UNK
     Route: 048
     Dates: start: 20090301, end: 20090401
  3. YAZ [Suspect]

REACTIONS (1)
  - CEREBROVASCULAR ACCIDENT [None]
